FAERS Safety Report 22205902 (Version 2)
Quarter: 2023Q2

REPORT INFORMATION
  Report Type: Report from Study
  Country: GB (occurrence: GB)
  Receive Date: 20230413
  Receipt Date: 20230421
  Transmission Date: 20230721
  Serious: Yes (Other)
  Sender: FDA-Public Use
  Company Number: GB-SAMSUNG BIOEPIS-SB-2023-08967

PATIENT
  Sex: Female

DRUGS (1)
  1. IMRALDI [Suspect]
     Active Substance: ADALIMUMAB
     Indication: Psoriatic arthropathy
     Dosage: STRENGTH: 40 MG/0.8 ML;
     Route: 058
     Dates: start: 20230320

REACTIONS (7)
  - Influenza [Unknown]
  - Injection site urticaria [Unknown]
  - Ear swelling [Unknown]
  - Pain [Unknown]
  - Chills [Unknown]
  - Rash macular [Unknown]
  - Rash scarlatiniform [Unknown]
